FAERS Safety Report 6617431-1 (Version None)
Quarter: 2010Q1

REPORT INFORMATION
  Report Type: 
  Country: None (occurrence: None)
  Receive Date: 20100308
  Receipt Date: 20100203
  Transmission Date: 20100710
  Serious: No
  Sender: FDA-Public Use
  Company Number: US-BAYER-200943670NA

PATIENT
  Age: 3 Year
  Sex: Female

DRUGS (1)
  1. BETASERON [Suspect]
     Indication: MULTIPLE SCLEROSIS
     Dates: start: 20091216

REACTIONS (2)
  - INJECTION SITE HAEMORRHAGE [None]
  - INJURY ASSOCIATED WITH DEVICE [None]
